FAERS Safety Report 24037063 (Version 2)
Quarter: 2024Q3

REPORT INFORMATION
  Report Type: Spontaneous
  Country: US (occurrence: US)
  Receive Date: 20240701
  Receipt Date: 20240918
  Transmission Date: 20241016
  Serious: No
  Sender: EXELA PHARMA SCIENCES
  Company Number: US-EXELAPHARMA-2024EXLA00013

PATIENT

DRUGS (2)
  1. AKOVAZ [Suspect]
     Active Substance: EPHEDRINE SULFATE
     Dosage: 25 MG/5 ML (5 MG/ML)
  2. AKOVAZ [Suspect]
     Active Substance: EPHEDRINE SULFATE

REACTIONS (1)
  - No adverse event [Unknown]
